FAERS Safety Report 5426250-3 (Version None)
Quarter: 2007Q3

REPORT INFORMATION
  Report Type: 
  Country: None (occurrence: None)
  Receive Date: 20070827
  Receipt Date: 20070820
  Transmission Date: 20080115
  Serious: Yes (Other)
  Sender: FDA-Public Use
  Company Number: CA-ASTRAZENECA-2007UW20236

PATIENT
  Age: 63 Year
  Sex: Male
  Weight: 77.3 kg

DRUGS (7)
  1. CRESTOR [Suspect]
     Route: 048
     Dates: start: 20070701
  2. ASA LOW DOSE [Concomitant]
     Route: 048
  3. MULTI-VITAMIN [Concomitant]
     Route: 048
  4. WILD FISH OIL CAPS [Concomitant]
     Route: 048
  5. NORVASC [Concomitant]
     Route: 048
  6. PRINIVIL [Concomitant]
     Route: 048
  7. LENTE INSULIN [Concomitant]

REACTIONS (4)
  - MALAISE [None]
  - PNEUMONIA [None]
  - SWOLLEN TONGUE [None]
  - THROAT TIGHTNESS [None]
